FAERS Safety Report 8849726 (Version 1)
Quarter: 2012Q4

REPORT INFORMATION
  Report Type: 
  Country: NL (occurrence: NL)
  Receive Date: 20121019
  Receipt Date: 20121019
  Transmission Date: 20130627
  Serious: Yes (Other)
  Sender: FDA-Public Use
  Company Number: NL-PFIZER INC-2012257288

PATIENT
  Sex: Male

DRUGS (1)
  1. ATORVASTATIN PFIZER [Suspect]
     Dosage: UNK

REACTIONS (8)
  - Epistaxis [Unknown]
  - Dizziness [Unknown]
  - Hypoaesthesia [Unknown]
  - Back pain [Unknown]
  - Sinusitis [Unknown]
  - Tinnitus [Unknown]
  - Myalgia [Unknown]
  - Dysgeusia [Unknown]
